FAERS Safety Report 6218012-4 (Version None)
Quarter: 2009Q2

REPORT INFORMATION
  Report Type: 
  Country: None (occurrence: None)
  Receive Date: 20090604
  Receipt Date: 20090604
  Transmission Date: 20091009
  Serious: Yes (Other)
  Sender: FDA-Public Use
  Company Number: None

PATIENT
  Age: 73 Year
  Sex: Female
  Weight: 61.2356 kg

DRUGS (1)
  1. ACTONEL [Suspect]
     Indication: OSTEOPENIA
     Dosage: 35 MG TABLET ONCE WEEKLY PO
     Route: 048
     Dates: start: 20060430, end: 20090531

REACTIONS (2)
  - EXTRASKELETAL OSSIFICATION [None]
  - MIDDLE EAR DISORDER [None]
